FAERS Safety Report 9770018 (Version 1)
Quarter: 2013Q4

REPORT INFORMATION
  Report Type: Spontaneous
  Country: US (occurrence: US)
  Receive Date: 20131218
  Receipt Date: 20131218
  Transmission Date: 20140711
  Serious: No
  Sender: FDA-Public Use
  Company Number: US-VERTEX PHARMACEUTICALS INC-AE-2011-000891

PATIENT
  Sex: 0

DRUGS (7)
  1. INCIVEK [Suspect]
     Indication: HEPATITIS C
     Dates: start: 20110812
  2. RIBAVIRIN [Concomitant]
     Indication: HEPATITIS C
     Dates: start: 20110812
  3. PEGASYS [Concomitant]
     Indication: HEPATITIS C
     Dates: start: 20110812
  4. CRESTOR [Concomitant]
     Indication: PROPHYLAXIS
  5. FOLIC ACID [Concomitant]
     Indication: SUPPLEMENTATION THERAPY
  6. VITAMIN B12 [Concomitant]
     Indication: SUPPLEMENTATION THERAPY
  7. LOPRESSOR [Concomitant]
     Indication: BLOOD PRESSURE

REACTIONS (3)
  - Haemorrhoids [Not Recovered/Not Resolved]
  - Constipation [Not Recovered/Not Resolved]
  - Anorectal discomfort [Not Recovered/Not Resolved]
